FAERS Safety Report 23906344 (Version 1)
Quarter: 2024Q2

REPORT INFORMATION
  Report Type: Spontaneous
  Country: ES (occurrence: ES)
  Receive Date: 20240528
  Receipt Date: 20240528
  Transmission Date: 20240716
  Serious: Yes (Other)
  Sender: FDA-Public Use
  Company Number: None

PATIENT
  Age: 35 Year
  Sex: Male

DRUGS (1)
  1. OZURDEX [Suspect]
     Active Substance: DEXAMETHASONE
     Indication: Diabetic retinal oedema
     Dosage: 700MCG / 6 MESES?700 MICROGRAMOS IMPLANTE INTRAVITREO EN APLICADOR, 1 IMPLANTE
     Route: 031
     Dates: start: 20240408, end: 20240408

REACTIONS (1)
  - Vitritis [Recovering/Resolving]

NARRATIVE: CASE EVENT DATE: 20240410
